FAERS Safety Report 14476144 (Version 1)
Quarter: 2018Q1

REPORT INFORMATION
  Report Type: Spontaneous
  Country: FR (occurrence: FR)
  Receive Date: 20180201
  Receipt Date: 20180201
  Transmission Date: 20180509
  Serious: Yes (Life-Threatening, Hospitalization)
  Sender: FDA-Public Use
  Company Number: FR-TEVA-2018-FR-850178

PATIENT
  Age: 77 Year
  Sex: Male
  Weight: 65 kg

DRUGS (12)
  1. ALIMTA [Suspect]
     Active Substance: PEMETREXED DISODIUM
     Dosage: 887.5 MG, CYCLICAL
     Route: 065
     Dates: start: 20171020
  2. CARBOPLATIN. [Suspect]
     Active Substance: CARBOPLATIN
     Indication: LUNG ADENOCARCINOMA
     Dosage: 630 MG, CYCLICAL
     Route: 065
     Dates: start: 20171020
  3. ALIMTA [Suspect]
     Active Substance: PEMETREXED DISODIUM
     Indication: LUNG ADENOCARCINOMA
     Dosage: 887.5 MG, CYCLICAL
     Route: 065
     Dates: start: 20171020
  4. ZOLPIDEM [Concomitant]
     Active Substance: ZOLPIDEM\ZOLPIDEM TARTRATE
     Dosage: 1 DF, EACH EVENING
     Route: 065
  5. ALIMTA [Suspect]
     Active Substance: PEMETREXED DISODIUM
     Dosage: 750 MG, CYCLICAL
     Route: 065
     Dates: start: 20171117
  6. CLINUTREN HP ENERGY [Concomitant]
     Dosage: 1 DF, DAILY
     Route: 065
  7. EUPANTOL [Concomitant]
     Active Substance: PANTOPRAZOLE SODIUM
     Dosage: 1 DF, EACH EVENING
     Route: 065
  8. ALIMTA [Suspect]
     Active Substance: PEMETREXED DISODIUM
     Dosage: 750 MG, CYCLICAL
     Route: 065
     Dates: start: 20171117
  9. AMLOR [Concomitant]
     Active Substance: AMLODIPINE BESYLATE
     Dosage: 5 MG, DAILY
     Route: 065
  10. SPECIAFOLDINE [Concomitant]
     Active Substance: FOLIC ACID
     Dosage: 1 DF, DAILY
     Route: 065
     Dates: start: 20171013
  11. EPREX [Concomitant]
     Active Substance: ERYTHROPOIETIN
     Dosage: 30000 IU, WEEKLY (1/W)
     Route: 065
  12. CARBOPLATIN. [Suspect]
     Active Substance: CARBOPLATIN
     Dosage: 485 MG, CYCLICAL
     Route: 065
     Dates: start: 20171117

REACTIONS (8)
  - Off label use [Unknown]
  - Hyperthermia [Unknown]
  - Decreased appetite [Unknown]
  - Lower respiratory tract congestion [Unknown]
  - Purpura [Unknown]
  - Stasis dermatitis [Unknown]
  - Vomiting [Unknown]
  - Bone marrow failure [Not Recovered/Not Resolved]

NARRATIVE: CASE EVENT DATE: 20171020
